FAERS Safety Report 6905014-5 (Version None)
Quarter: 2010Q3

REPORT INFORMATION
  Report Type: 
  Country: None (occurrence: None)
  Receive Date: 20100804
  Receipt Date: 20090826
  Transmission Date: 20110219
  Serious: Yes (Life-Threatening, Hospitalization, Other)
  Sender: FDA-Public Use
  Company Number: US-PFIZER INC-2009233666

PATIENT
  Sex: Female
  Weight: 68.027 kg

DRUGS (4)
  1. LYRICA [Suspect]
     Indication: COMPLEX REGIONAL PAIN SYNDROME
     Dosage: 75 MG, 2X/DAY
     Route: 048
     Dates: start: 20090513, end: 20090518
  2. ULTRAM ER [Concomitant]
     Dosage: 200 MG, 1X/DAY
  3. LUNESTA [Concomitant]
     Dosage: 2 MG, 1X/DAY
  4. LEXAPRO [Concomitant]
     Dosage: 10 MG, 1X/DAY

REACTIONS (4)
  - DYSPNOEA [None]
  - PHOTOPHOBIA [None]
  - URTICARIA [None]
  - VISION BLURRED [None]
